FAERS Safety Report 10068620 (Version 2)
Quarter: 2014Q2

REPORT INFORMATION
  Report Type: Spontaneous
  Country: US (occurrence: US)
  Receive Date: 20140409
  Receipt Date: 20140422
  Transmission Date: 20141212
  Serious: Yes (Other)
  Sender: FDA-Public Use
  Company Number: US-GLAXOSMITHKLINE-A1068541A

PATIENT
  Sex: Male

DRUGS (1)
  1. AVODART [Suspect]
     Indication: NEOPLASM MALIGNANT
     Dosage: .5MG UNKNOWN
     Route: 065
     Dates: start: 20130202

REACTIONS (1)
  - Cardiac failure congestive [Unknown]
